FAERS Safety Report 12606653 (Version 2)
Quarter: 2017Q2

REPORT INFORMATION
  Report Type: Report from Study
  Country: US (occurrence: US)
  Receive Date: 20160729
  Receipt Date: 20170526
  Transmission Date: 20170830
  Serious: Yes (Other)
  Sender: FDA-Public Use
  Company Number: US-BIOGEN-2013BI098983

PATIENT
  Sex: Female

DRUGS (4)
  1. TYSABRI [Suspect]
     Active Substance: NATALIZUMAB
     Route: 042
     Dates: start: 20141104
  2. GABAPENTIN. [Concomitant]
     Active Substance: GABAPENTIN
     Indication: TONGUE BLISTERING
     Route: 065
  3. TYSABRI [Suspect]
     Active Substance: NATALIZUMAB
     Indication: MULTIPLE SCLEROSIS
     Route: 042
     Dates: start: 20130709, end: 20131008
  4. CYTOXAN [Concomitant]
     Active Substance: CYCLOPHOSPHAMIDE
     Indication: PRODUCT USED FOR UNKNOWN INDICATION
     Route: 065

REACTIONS (37)
  - Stress [Not Recovered/Not Resolved]
  - Candida infection [Recovered/Resolved]
  - Suicidal ideation [Not Recovered/Not Resolved]
  - Jaundice [Unknown]
  - Surgery [Unknown]
  - Haemorrhage [Unknown]
  - Oropharyngeal pain [Not Recovered/Not Resolved]
  - Cystitis [Recovered/Resolved]
  - Hyperhidrosis [Not Recovered/Not Resolved]
  - Eye contusion [Unknown]
  - Blister [Not Recovered/Not Resolved]
  - Chills [Not Recovered/Not Resolved]
  - Musculoskeletal disorder [Recovered/Resolved]
  - Lymph node pain [Not Recovered/Not Resolved]
  - Dysuria [Unknown]
  - Dizziness [Not Recovered/Not Resolved]
  - Blindness transient [Recovered/Resolved]
  - Peripheral swelling [Not Recovered/Not Resolved]
  - Post-traumatic stress disorder [Not Recovered/Not Resolved]
  - Dysphagia [Recovered/Resolved]
  - Skin erosion [Unknown]
  - Acne [Not Recovered/Not Resolved]
  - Bacterial test positive [Recovered/Resolved]
  - Neurodermatitis [Not Recovered/Not Resolved]
  - Blood urine present [Recovered/Resolved]
  - Weight increased [Not Recovered/Not Resolved]
  - Fatigue [Not Recovered/Not Resolved]
  - Pharyngitis streptococcal [Unknown]
  - Pruritus [Not Recovered/Not Resolved]
  - Central nervous system lesion [Not Recovered/Not Resolved]
  - Mobility decreased [Unknown]
  - Weight decreased [Unknown]
  - Hypersensitivity [Not Recovered/Not Resolved]
  - Multiple sclerosis [Not Recovered/Not Resolved]
  - Panic reaction [Not Recovered/Not Resolved]
  - Drug hypersensitivity [Not Recovered/Not Resolved]
  - Asthenia [Unknown]

NARRATIVE: CASE EVENT DATE: 2013
